FAERS Safety Report 17849772 (Version 1)
Quarter: 2020Q2

REPORT INFORMATION
  Report Type: Spontaneous
  Country: US (occurrence: US)
  Receive Date: 20200602
  Receipt Date: 20200602
  Transmission Date: 20200714
  Serious: No
  Sender: FDA-Public Use
  Company Number: US-PFIZER INC-2020213835

PATIENT
  Age: 65 Year
  Sex: Female
  Weight: 77.11 kg

DRUGS (4)
  1. ADVIL COLD AND SINUS [Suspect]
     Active Substance: IBUPROFEN\PSEUDOEPHEDRINE HYDROCHLORIDE
     Indication: SINUS DISORDER
     Dosage: 1 DF, AS NEEDED (1 CAPLET TAKEN MAYBE EVERY 6 HOURS AS NEEDED)
  2. SYNTHROID [Concomitant]
     Active Substance: LEVOTHYROXINE SODIUM
     Indication: THYROID DISORDER
     Dosage: 100 MG, CYCLIC (5 DAYS/WEEK, 1/2 TABLET ON SATURDAY,SKIP SUNDAY)
     Dates: start: 1998
  3. ADVIL COLD AND SINUS [Suspect]
     Active Substance: IBUPROFEN\PSEUDOEPHEDRINE HYDROCHLORIDE
     Indication: DIZZINESS
  4. ADVIL COLD AND SINUS [Suspect]
     Active Substance: IBUPROFEN\PSEUDOEPHEDRINE HYDROCHLORIDE
     Indication: FLUSHING

REACTIONS (1)
  - Drug ineffective [Unknown]
